FAERS Safety Report 7235521-X (Version None)
Quarter: 2011Q1

REPORT INFORMATION
  Report Type: 
  Country: None (occurrence: None)
  Receive Date: 20110120
  Receipt Date: 20110110
  Transmission Date: 20110831
  Serious: Yes (Hospitalization)
  Sender: FDA-Public Use
  Company Number: PHHY2011DE02175

PATIENT
  Sex: Female

DRUGS (3)
  1. RASILEZ [Suspect]
     Dosage: 150 MG, UNK
  2. BLOPRESS [Concomitant]
     Dosage: UNK
  3. TTINOMIN [Concomitant]
     Dosage: UNK

REACTIONS (2)
  - RENAL PAIN [None]
  - CHROMATURIA [None]
